FAERS Safety Report 12779511 (Version 1)
Quarter: 2016Q3

REPORT INFORMATION
  Report Type: Spontaneous
  Country: US (occurrence: US)
  Receive Date: 20160922
  Receipt Date: 20160922
  Transmission Date: 20161109
  Serious: Yes (Death)
  Sender: FDA-Public Use
  Company Number: None

PATIENT
  Age: 55 Year
  Sex: Male
  Weight: 80.29 kg

DRUGS (1)
  1. WARFARIN [Suspect]
     Active Substance: WARFARIN
     Indication: PULMONARY EMBOLISM
     Route: 048
     Dates: start: 20101221, end: 20110120

REACTIONS (4)
  - Haemoglobin decreased [None]
  - Haematocrit decreased [None]
  - Gastrointestinal haemorrhage [None]
  - Hypotension [None]

NARRATIVE: CASE EVENT DATE: 20110120
